APPROVED DRUG PRODUCT: BREXPIPRAZOLE
Active Ingredient: BREXPIPRAZOLE
Strength: 0.5MG
Dosage Form/Route: TABLET;ORAL
Application: A213782 | Product #002
Applicant: ALKEM LABORATORIES LTD
Approved: Nov 28, 2023 | RLD: No | RS: No | Type: DISCN